FAERS Safety Report 6736878-6 (Version None)
Quarter: 2010Q2

REPORT INFORMATION
  Report Type: 
  Country: None (occurrence: None)
  Receive Date: 20100520
  Receipt Date: 20100520
  Transmission Date: 20101027
  Serious: Yes (Hospitalization)
  Sender: FDA-Public Use
  Company Number: None

PATIENT
  Sex: Male
  Weight: 81.6 kg

DRUGS (4)
  1. FLUOROURACIL [Suspect]
     Dosage: 16800 MG
     Dates: end: 20100331
  2. BEVACIZUMAB (RHUMAB VEGF) [Suspect]
     Dosage: 1200 MG
     Dates: end: 20100331
  3. LEUCOVORIN CALCIUM [Suspect]
     Dosage: 800 MG
     Dates: end: 20100331
  4. ELOXATIN [Suspect]
     Dosage: 510 MG
     Dates: end: 20100331

REACTIONS (2)
  - NEUTROPENIA [None]
  - RECTAL ABSCESS [None]
